FAERS Safety Report 17900213 (Version 1)
Quarter: 2020Q3

REPORT INFORMATION
  Report Type: Spontaneous
  Country: DE (occurrence: DE)
  Receive Date: 20200616
  Receipt Date: 20200616
  Transmission Date: 20201104
  Serious: Yes (Hospitalization)
  Sender: FDA-Public Use
  Company Number: DE-TEVA-2020-DE-1247519

PATIENT
  Age: 80 Year
  Sex: Male
  Weight: 107 kg

DRUGS (8)
  1. CANDESARTAN/HYDROCHLOROTHIAZID [Suspect]
     Active Substance: CANDESARTAN CILEXETIL\HYDROCHLOROTHIAZIDE
     Route: 065
  2. ETORICOXIB. [Suspect]
     Active Substance: ETORICOXIB
     Route: 065
  3. BISOPROLOL/HYDROCHLOROTHIAZID [Suspect]
     Active Substance: BISOPROLOL FUMARATE\HYDROCHLOROTHIAZIDE
     Route: 065
  4. PANTOPRAZOL [Concomitant]
     Active Substance: PANTOPRAZOLE SODIUM
  5. TORASEMID [Suspect]
     Active Substance: TORSEMIDE
     Route: 065
  6. DIHYDRALAZIN [Concomitant]
     Active Substance: DIHYDRALAZINE SULFATE
  7. RIVAROXABAN [Concomitant]
     Active Substance: RIVAROXABAN
  8. AMLODIPIN [Concomitant]
     Active Substance: AMLODIPINE BESYLATE

REACTIONS (6)
  - Pyrexia [Unknown]
  - Chills [Unknown]
  - Renal colic [Unknown]
  - Urinary retention [Unknown]
  - Product monitoring error [Unknown]
  - Product prescribing error [Unknown]
